FAERS Safety Report 7202579-3 (Version None)
Quarter: 2010Q4

REPORT INFORMATION
  Report Type: 
  Country: None (occurrence: None)
  Receive Date: 20101229
  Receipt Date: 20101223
  Transmission Date: 20110411
  Serious: Yes (Hospitalization, Other)
  Sender: FDA-Public Use
  Company Number: TR-ABBOTT-10P-161-0693502-00

PATIENT
  Age: 3 Year
  Sex: Female
  Weight: 14 kg

DRUGS (1)
  1. TARKA [Suspect]
     Indication: PRODUCT USED FOR UNKNOWN INDICATION
     Dosage: 6 TABLETS-240 MG VERAPAMIL/4 MG TRANDOLAPRIL

REACTIONS (8)
  - BRADYCARDIA [None]
  - CARDIAC MURMUR [None]
  - FLUSHING [None]
  - HYPERGLYCAEMIA [None]
  - LETHARGY [None]
  - LEUKOCYTOSIS [None]
  - OVERDOSE [None]
  - SOMNOLENCE [None]
